FAERS Safety Report 8057048-8 (Version None)
Quarter: 2012Q1

REPORT INFORMATION
  Report Type: 
  Country: None (occurrence: None)
  Receive Date: 20120119
  Receipt Date: 20120112
  Transmission Date: 20120608
  Serious: Yes (Hospitalization)
  Sender: FDA-Public Use
  Company Number: TH-ABBOTT-12P-155-0892485-00

PATIENT
  Age: 75 Year
  Sex: Male

DRUGS (1)
  1. CLARITHROMYCIN [Suspect]
     Indication: PRODUCT USED FOR UNKNOWN INDICATION
     Dosage: STAT, ONE TIME USED
     Route: 048
     Dates: start: 20101018, end: 20101018

REACTIONS (2)
  - ANGIOEDEMA [None]
  - MOUTH ULCERATION [None]
